FAERS Safety Report 11590147 (Version 1)
Quarter: 2015Q4

REPORT INFORMATION
  Report Type: Spontaneous
  Country: GB (occurrence: GB)
  Receive Date: 20151002
  Receipt Date: 20151002
  Transmission Date: 20160304
  Serious: Yes (Other)
  Sender: FDA-Public Use
  Company Number: GB-ELI_LILLY_AND_COMPANY-GB201509006822

PATIENT
  Age: 50 Year
  Sex: Female
  Weight: 64.41 kg

DRUGS (2)
  1. CYMBALTA [Suspect]
     Active Substance: DULOXETINE HYDROCHLORIDE
     Dosage: 30 MG, UNKNOWN
     Route: 048
  2. CYMBALTA [Suspect]
     Active Substance: DULOXETINE HYDROCHLORIDE
     Indication: DEPRESSION
     Dosage: 90 MG, UNKNOWN
     Route: 048

REACTIONS (14)
  - Diarrhoea [Not Recovered/Not Resolved]
  - Cognitive disorder [Unknown]
  - Emotional poverty [Unknown]
  - Crying [Unknown]
  - Inappropriate affect [Unknown]
  - Onychoclasis [Not Recovered/Not Resolved]
  - Paraesthesia [Unknown]
  - Affect lability [Unknown]
  - Anger [Unknown]
  - Dependence [Not Recovered/Not Resolved]
  - Off label use [Unknown]
  - Anal fissure [Not Recovered/Not Resolved]
  - Confusional state [Unknown]
  - Withdrawal syndrome [Unknown]
